FAERS Safety Report 17243060 (Version 1)
Quarter: 2020Q1

REPORT INFORMATION
  Report Type: Spontaneous
  Country: AU (occurrence: AU)
  Receive Date: 20200107
  Receipt Date: 20200107
  Transmission Date: 20200409
  Serious: Yes (Other)
  Sender: FDA-Public Use
  Company Number: AU-COVIS PHARMA B.V.-2019COV00337

PATIENT
  Sex: Female

DRUGS (6)
  1. SYMBICORT [Suspect]
     Active Substance: BUDESONIDE\FORMOTEROL FUMARATE DIHYDRATE
  2. PREDNISONE. [Suspect]
     Active Substance: PREDNISONE
  3. FLIXOTIDE [Suspect]
     Active Substance: FLUTICASONE PROPIONATE
  4. SERETIDE [Suspect]
     Active Substance: FLUTICASONE PROPIONATE\SALMETEROL XINAFOATE
  5. ALVESCO [Suspect]
     Active Substance: CICLESONIDE
  6. PULMICORT TURBUHALER [Suspect]
     Active Substance: BUDESONIDE
     Dosage: 200 ?G
     Dates: start: 201904

REACTIONS (2)
  - Atrial flutter [Unknown]
  - Fluid retention [Unknown]
